FAERS Safety Report 20015383 (Version 1)
Quarter: 2021Q4

REPORT INFORMATION
  Report Type: Spontaneous
  Country: US (occurrence: None)
  Receive Date: 20211029
  Receipt Date: 20211029
  Transmission Date: 20220303
  Serious: No
  Sender: FDA-Public Use
  Company Number: None

PATIENT
  Age: 36 Year
  Sex: Female
  Weight: 121.5 kg

DRUGS (3)
  1. REGEN-COV [Suspect]
     Active Substance: CASIRIVIMAB\IMDEVIMAB
     Indication: COVID-19
     Dosage: OTHER FREQUENCY : ONCE;?
     Route: 042
     Dates: start: 20211029, end: 20211029
  2. REGEN-COV [Suspect]
     Active Substance: CASIRIVIMAB\IMDEVIMAB
     Indication: Obesity
  3. BRAUN NSS 100 ML LOT# J1E695 [Concomitant]
     Dates: start: 20211029, end: 20211029

REACTIONS (2)
  - Presyncope [None]
  - Infusion related reaction [None]

NARRATIVE: CASE EVENT DATE: 20211029
